FAERS Safety Report 11399043 (Version 1)
Quarter: 2015Q3

REPORT INFORMATION
  Report Type: Spontaneous
  Country: None (occurrence: None)
  Receive Date: 20150818
  Receipt Date: 20150818
  Transmission Date: 20151125
  Serious: Yes (Hospitalization)
  Sender: FDA-Public Use
  Company Number: None

PATIENT
  Age: 1 Day
  Sex: Female

DRUGS (1)
  1. ESCITALOPRAM 10MG [Suspect]
     Active Substance: ESCITALOPRAM OXALATE
     Indication: MAJOR DEPRESSION
     Dates: end: 20150806

REACTIONS (4)
  - Foetal exposure during pregnancy [None]
  - Cyanosis neonatal [None]
  - Apnoea neonatal [None]
  - Neonatal respiratory distress syndrome [None]

NARRATIVE: CASE EVENT DATE: 20150728
